FAERS Safety Report 7811492-X (Version None)
Quarter: 2011Q4

REPORT INFORMATION
  Report Type: 
  Country: None (occurrence: None)
  Receive Date: 20111013
  Receipt Date: 20111013
  Transmission Date: 20120403
  Serious: Yes (Other)
  Sender: FDA-Public Use
  Company Number: None

PATIENT
  Sex: Female

DRUGS (1)
  1. LYRICA [Suspect]
     Indication: NERVE COMPRESSION
     Dosage: 1 CAPSULE
     Route: 048
     Dates: start: 20101101, end: 20111004

REACTIONS (4)
  - MENTAL IMPAIRMENT [None]
  - OEDEMA [None]
  - CONSTIPATION [None]
  - ALOPECIA [None]
